FAERS Safety Report 14141146 (Version 7)
Quarter: 2018Q3

REPORT INFORMATION
  Report Type: Spontaneous
  Country: US (occurrence: US)
  Receive Date: 20171030
  Receipt Date: 20180905
  Transmission Date: 20181010
  Serious: Yes (Other)
  Sender: FDA-Public Use
  Company Number: US-PFIZER INC-2017465711

PATIENT
  Age: 77 Year
  Sex: Female
  Weight: 61.23 kg

DRUGS (1)
  1. XELJANZ XR [Suspect]
     Active Substance: TOFACITINIB CITRATE
     Indication: RHEUMATOID ARTHRITIS
     Dosage: 11 MG, 1X/DAY (EVERY MORNING)
     Route: 048
     Dates: start: 2018

REACTIONS (6)
  - Faeces hard [Unknown]
  - Hypoaesthesia [Unknown]
  - Malaise [Unknown]
  - Dry mouth [Unknown]
  - Drug effect incomplete [Unknown]
  - White blood cell count increased [Recovering/Resolving]

NARRATIVE: CASE EVENT DATE: 2018
